FAERS Safety Report 15691592 (Version 2)
Quarter: 2019Q1

REPORT INFORMATION
  Report Type: Spontaneous
  Country: IT (occurrence: IT)
  Receive Date: 20181205
  Receipt Date: 20190131
  Transmission Date: 20190417
  Serious: Yes (Hospitalization)
  Sender: FDA-Public Use
  Company Number: IT-LUNDBECK-DKLU2057759

PATIENT
  Age: 37 Year
  Sex: Male
  Weight: 70 kg

DRUGS (3)
  1. FRISIUM [Suspect]
     Active Substance: CLOBAZAM
     Indication: MEDICATION ERROR
     Dosage: TOTAL DOSE
     Route: 048
     Dates: start: 20181010, end: 20181010
  2. LAMOTRIGINA [Suspect]
     Active Substance: LAMOTRIGINE
     Indication: MEDICATION ERROR
     Dosage: TOTAL DOSE
     Route: 048
     Dates: start: 20181010, end: 20181010
  3. OXCARBAZEPINE. [Suspect]
     Active Substance: OXCARBAZEPINE
     Indication: MEDICATION ERROR
     Dosage: TOTAL DOSE
     Route: 048
     Dates: start: 20181010, end: 20181010

REACTIONS (5)
  - Vomiting [Recovered/Resolved]
  - Medication error [Unknown]
  - Sopor [Recovered/Resolved]
  - Extra dose administered [Unknown]
  - Hypokinesia [Recovered/Resolved]

NARRATIVE: CASE EVENT DATE: 20181010
